FAERS Safety Report 6613208-1 (Version None)
Quarter: 2010Q1

REPORT INFORMATION
  Report Type: 
  Country: None (occurrence: None)
  Receive Date: 20100304
  Receipt Date: 20100224
  Transmission Date: 20100710
  Serious: Yes (Other)
  Sender: FDA-Public Use
  Company Number: CA-JNJFOC-20100300283

PATIENT
  Sex: Female
  Weight: 63.8 kg

DRUGS (7)
  1. REMICADE [Suspect]
     Indication: CROHN'S DISEASE
     Route: 042
  2. PAROXETINE HCL [Concomitant]
  3. TRAZOREL [Concomitant]
  4. RISPERIDONE [Concomitant]
  5. OMEPRAZOLE [Concomitant]
  6. CITRUCEL [Concomitant]
  7. VITAMINS NOS [Concomitant]

REACTIONS (4)
  - COUGH [None]
  - CYSTITIS [None]
  - DEVICE OCCLUSION [None]
  - NASOPHARYNGITIS [None]
